FAERS Safety Report 8478357-4 (Version None)
Quarter: 2012Q2

REPORT INFORMATION
  Report Type: 
  Country: None (occurrence: None)
  Receive Date: 20120629
  Receipt Date: 20120621
  Transmission Date: 20120825
  Serious: Yes (Hospitalization, Disabling, Other)
  Sender: FDA-Public Use
  Company Number: US-MPIJNJ-2012-03346

PATIENT
  Sex: Male
  Weight: 128.1 kg

DRUGS (17)
  1. CYTOXAN [Suspect]
  2. METOPROLOL SUCCINATE [Concomitant]
     Indication: HYPERTENSION
     Dosage: 100 MG, UNK
  3. RAMIPRIL [Concomitant]
     Indication: HYPERTENSION
     Dosage: 5 MG, UNK
  4. DULOXETIME HYDROCHLORIDE [Concomitant]
     Indication: PRODUCT USED FOR UNKNOWN INDICATION
     Dosage: 90 UNK, UNK
  5. GLUCOPHAGE [Concomitant]
     Indication: PRODUCT USED FOR UNKNOWN INDICATION
     Dosage: 500 MG, UNK
  6. REVLIMID [Suspect]
     Indication: PRODUCT USED FOR UNKNOWN INDICATION
  7. CATAPRES                           /00171101/ [Concomitant]
     Indication: HYPERTENSION
     Dosage: 0.3 MG, UNK
  8. VELCADE [Suspect]
     Dosage: UNK
     Dates: start: 20120503
  9. DEXAMETHASONE [Suspect]
     Indication: PRODUCT USED FOR UNKNOWN INDICATION
  10. ALLOPURINOL [Concomitant]
     Indication: GOUT
     Dosage: 300 MG, UNK
  11. CYMBALTA [Concomitant]
     Indication: DEPRESSION
     Dosage: 90 MG, UNK
  12. PERCOCET [Concomitant]
     Indication: PRODUCT USED FOR UNKNOWN INDICATION
     Dosage: UNK
  13. ZOMETA [Concomitant]
     Indication: HYPERCALCAEMIA
  14. ATIVAN [Concomitant]
     Indication: ANXIETY
     Dosage: 1 MG, PRN
  15. ASCRIPTIN A/D [Concomitant]
     Indication: HYPERTENSION
     Dosage: 325 MG, UNK
  16. VELCADE [Suspect]
     Indication: MULTIPLE MYELOMA
     Dosage: 1.3 MG, CYCLIC
     Route: 058
     Dates: start: 20120307, end: 20120423
  17. ETOPOSIDE [Suspect]
     Indication: PRODUCT USED FOR UNKNOWN INDICATION

REACTIONS (10)
  - MUSCULOSKELETAL PAIN [None]
  - PATHOLOGICAL FRACTURE [None]
  - MULTIPLE MYELOMA [None]
  - OSTEONECROSIS [None]
  - MENTAL STATUS CHANGES [None]
  - THROMBOCYTOPENIA [None]
  - FATIGUE [None]
  - GAIT DISTURBANCE [None]
  - ANAEMIA [None]
  - HYPERCALCAEMIA [None]
